FAERS Safety Report 24445867 (Version 2)
Quarter: 2024Q4

REPORT INFORMATION
  Report Type: Spontaneous
  Country: TR (occurrence: TR)
  Receive Date: 20241016
  Receipt Date: 20241205
  Transmission Date: 20250115
  Serious: Yes (Death, Hospitalization, Other)
  Sender: INCYTE
  Company Number: TR-002147023-NVSC2024TR200295

PATIENT

DRUGS (7)
  1. RUXOLITINIB [Suspect]
     Active Substance: RUXOLITINIB
     Indication: Graft versus host disease in gastrointestinal tract
     Dosage: UNK
     Route: 065
  2. RUXOLITINIB [Suspect]
     Active Substance: RUXOLITINIB
     Indication: Cytomegalovirus viraemia
  3. RUXOLITINIB [Suspect]
     Active Substance: RUXOLITINIB
     Indication: Graft versus host disease in skin
  4. VALGANCICLOVIR [Concomitant]
     Active Substance: VALGANCICLOVIR
     Indication: Graft versus host disease in skin
     Dosage: UNK
     Route: 065
  5. VALGANCICLOVIR [Concomitant]
     Active Substance: VALGANCICLOVIR
     Indication: Cytomegalovirus viraemia
  6. VALGANCICLOVIR [Concomitant]
     Active Substance: VALGANCICLOVIR
     Indication: Graft versus host disease in gastrointestinal tract
  7. ASCIMINIB [Concomitant]
     Active Substance: ASCIMINIB
     Indication: Chronic myeloid leukaemia
     Dosage: 80 MG, QD (40 MG BID) (CABL001A02401M)
     Route: 048
     Dates: start: 20240328, end: 20240919

REACTIONS (8)
  - Cystitis [Fatal]
  - Cytopenia [Fatal]
  - Death [Fatal]
  - General physical condition abnormal [Fatal]
  - Hepatic function abnormal [Unknown]
  - Pneumonia [Fatal]
  - Infection [Fatal]
  - Seizure [Fatal]
